FAERS Safety Report 6388339-4 (Version None)
Quarter: 2009Q4

REPORT INFORMATION
  Report Type: 
  Country: None (occurrence: None)
  Receive Date: 20091005
  Receipt Date: 20090928
  Transmission Date: 20100525
  Serious: Yes (Hospitalization)
  Sender: FDA-Public Use
  Company Number: JP-MERCK-0909USA04741

PATIENT
  Age: 68 Year
  Sex: Female

DRUGS (4)
  1. FOSAMAX [Suspect]
     Indication: OSTEOPOROSIS
     Route: 048
     Dates: start: 20090301, end: 20090907
  2. FOSAMAX [Suspect]
     Route: 048
     Dates: start: 20090928
  3. BAKTAR [Concomitant]
     Indication: INFECTION PROPHYLAXIS
     Route: 048
     Dates: start: 20080401, end: 20090917
  4. PROGRAF [Concomitant]
     Indication: DERMATOMYOSITIS
     Route: 048
     Dates: start: 20080401

REACTIONS (1)
  - PYREXIA [None]
